FAERS Safety Report 9047011 (Version 6)
Quarter: 2013Q3

REPORT INFORMATION
  Report Type: Spontaneous
  Country: US (occurrence: US)
  Receive Date: 20130131
  Receipt Date: 20130810
  Transmission Date: 20140515
  Serious: Yes (Death, Hospitalization, Disabling, Other)
  Sender: FDA-Public Use
  Company Number: US-009507513-1203USA03312

PATIENT
  Sex: Female

DRUGS (13)
  1. FOSAMAX [Suspect]
     Indication: OSTEOPOROSIS
     Dosage: 10 MG, QD
     Route: 048
     Dates: start: 19970813
  2. FOSAMAX [Suspect]
     Indication: COMPRESSION FRACTURE
     Dosage: 70 MG, UNK
     Route: 048
  3. ALENDRONATE SODIUM [Suspect]
     Indication: OSTEOPENIA
     Dates: start: 199907, end: 200611
  4. ALENDRONATE SODIUM [Suspect]
     Indication: OSTEOPOROSIS
  5. PREMARIN [Concomitant]
     Indication: OSTEOPOROSIS
     Dosage: .65 MG, UNK
     Dates: start: 19970708
  6. PREMARIN [Concomitant]
     Indication: COMPRESSION FRACTURE
  7. PROVERA [Concomitant]
     Indication: OSTEOPOROSIS
     Dosage: 2.5 MG, QD
     Dates: start: 19970708
  8. PROVERA [Concomitant]
     Indication: COMPRESSION FRACTURE
  9. CALCIUM (UNSPECIFIED) [Concomitant]
     Indication: OSTEOPOROSIS
     Dosage: 2 QD
     Dates: start: 19970708
  10. CALCIUM (UNSPECIFIED) [Concomitant]
     Indication: COMPRESSION FRACTURE
  11. DECADRON (DEXAMETHASONE) [Concomitant]
     Indication: ARTHRITIS
     Dosage: 4 MG, UNK
     Route: 030
     Dates: start: 19980406
  12. RELAFEN [Concomitant]
     Indication: ARTHRITIS
     Dosage: 750 MG, UNK
  13. CLARITIN [Concomitant]
     Indication: HYPERSENSITIVITY
     Dosage: UNK, PRN
     Dates: start: 19980909

REACTIONS (31)
  - Hip fracture [Recovered/Resolved]
  - Open reduction of fracture [Unknown]
  - Haemorrhage intracranial [Fatal]
  - Bone disorder [Not Recovered/Not Resolved]
  - Psychiatric decompensation [Unknown]
  - Bipolar II disorder [Unknown]
  - Osteonecrosis [Unknown]
  - Osteoporosis [Not Recovered/Not Resolved]
  - Multiple fractures [Not Recovered/Not Resolved]
  - Femur fracture [Not Recovered/Not Resolved]
  - Bone density decreased [Not Recovered/Not Resolved]
  - Spinal compression fracture [Not Recovered/Not Resolved]
  - Adverse event [Unknown]
  - Spinal osteoarthritis [Unknown]
  - Osteoarthritis [Unknown]
  - Intervertebral disc protrusion [Unknown]
  - Bone marrow oedema [Unknown]
  - Medical device pain [Unknown]
  - Arthritis [Unknown]
  - Thyroid disorder [Unknown]
  - Anxiety disorder [Unknown]
  - Computerised tomogram abnormal [Unknown]
  - Lumbar vertebral fracture [Unknown]
  - Blood cholesterol increased [Unknown]
  - Chest pain [Unknown]
  - Chest pain [Unknown]
  - Muscle strain [Unknown]
  - Muscle strain [Unknown]
  - Vaginitis bacterial [Unknown]
  - Sinusitis [Unknown]
  - Arthralgia [Unknown]
